FAERS Safety Report 15285741 (Version 2)
Quarter: 2019Q2

REPORT INFORMATION
  Report Type: Spontaneous
  Country: DE (occurrence: DE)
  Receive Date: 20180816
  Receipt Date: 20190523
  Transmission Date: 20190711
  Serious: No
  Sender: FDA-Public Use
  Company Number: DE-ASTRAZENECA-2018SF02992

PATIENT
  Age: 2849 Week
  Sex: Female
  Weight: 68 kg

DRUGS (5)
  1. FASENRA [Suspect]
     Active Substance: BENRALIZUMAB
     Indication: ASTHMA
     Route: 058
     Dates: start: 20180705, end: 20180717
  2. SPIRIVA RESPIMAT [Concomitant]
     Active Substance: TIOTROPIUM BROMIDE
     Dosage: 2.5 MCG
  3. SALBULAIR [Concomitant]
     Active Substance: ALBUTEROL SULFATE
     Dosage: 100 MCG AUTOHALER IF NEEDED
  4. VIANI FORTE [Concomitant]
     Active Substance: FLUTICASONE PROPIONATE\SALMETEROL XINAFOATE
     Dates: start: 201610
  5. SPIRIVA RESPIMAT [Concomitant]
     Active Substance: TIOTROPIUM BROMIDE

REACTIONS (4)
  - Oropharyngeal pain [Not Recovered/Not Resolved]
  - Oral herpes [Not Recovered/Not Resolved]
  - Lymphadenopathy [Not Recovered/Not Resolved]
  - Body temperature increased [Not Recovered/Not Resolved]

NARRATIVE: CASE EVENT DATE: 20180707
